FAERS Safety Report 10042405 (Version 2)
Quarter: 2014Q2

REPORT INFORMATION
  Report Type: Spontaneous
  Country: US (occurrence: US)
  Receive Date: 20140327
  Receipt Date: 20140418
  Transmission Date: 20141212
  Serious: Yes (Death)
  Sender: FDA-Public Use
  Company Number: US-JNJFOC-20140317444

PATIENT
  Sex: Male

DRUGS (8)
  1. IMBRUVICA [Suspect]
     Indication: MANTLE CELL LYMPHOMA
     Route: 048
     Dates: start: 20131230
  2. VITAMIN C [Concomitant]
  3. ASPIRIN [Concomitant]
  4. CALCIUM WITH VITAMIN D [Concomitant]
  5. FERROUS SULFATE [Concomitant]
  6. FINASTERIDE [Concomitant]
  7. MULTIVITAMINS [Concomitant]
  8. VITAMIN B6 [Concomitant]

REACTIONS (7)
  - Pneumonia [Fatal]
  - VIIth nerve paralysis [Unknown]
  - Hemiparesis [Unknown]
  - Dysarthria [Unknown]
  - Atrial fibrillation [Unknown]
  - Urinary tract infection [Unknown]
  - Cough [Unknown]
